FAERS Safety Report 7264967-9 (Version None)
Quarter: 2011Q1

REPORT INFORMATION
  Report Type: 
  Country: None (occurrence: None)
  Receive Date: 20110119
  Receipt Date: 20110106
  Transmission Date: 20110831
  Serious: Yes (Hospitalization, Other)
  Sender: FDA-Public Use
  Company Number: US-JNJFOC-20090204645

PATIENT
  Age: 71 Year
  Sex: Male
  Weight: 104 kg

DRUGS (5)
  1. DECITABINE (DECITABINE) LYOPHILIZED POWDER [Suspect]
     Indication: ACUTE MYELOID LEUKAEMIA
     Dosage: (20 MG/M2, 1 IN 1 DAY, INTRAVENOUS) (20 MG/M2, 1 IN 1 DAY, INTRAVENOUS) (20 MG/M2, 1 IN 1 DAY, INTRA
     Route: 042
     Dates: start: 20090225, end: 20090301
  2. DECITABINE (DECITABINE) LYOPHILIZED POWDER [Suspect]
     Indication: ACUTE MYELOID LEUKAEMIA
     Dosage: (20 MG/M2, 1 IN 1 DAY, INTRAVENOUS) (20 MG/M2, 1 IN 1 DAY, INTRAVENOUS) (20 MG/M2, 1 IN 1 DAY, INTRA
     Route: 042
     Dates: start: 20090212, end: 20090212
  3. DECITABINE (DECITABINE) LYOPHILIZED POWDER [Suspect]
     Indication: ACUTE MYELOID LEUKAEMIA
     Dosage: (20 MG/M2, 1 IN 1 DAY, INTRAVENOUS) (20 MG/M2, 1 IN 1 DAY, INTRAVENOUS) (20 MG/M2, 1 IN 1 DAY, INTRA
     Route: 042
     Dates: start: 20081118
  4. DECITABINE (DECITABINE) LYOPHILIZED POWDER [Suspect]
     Indication: ACUTE MYELOID LEUKAEMIA
     Dosage: (20 MG/M2, 1 IN 1 DAY, INTRAVENOUS) (20 MG/M2, 1 IN 1 DAY, INTRAVENOUS) (20 MG/M2, 1 IN 1 DAY, INTRA
     Route: 042
     Dates: start: 20090115, end: 20090121
  5. FLUCONAZOLE [Suspect]
     Indication: ELECTROCARDIOGRAM QT PROLONGED
     Dosage: 800 MG, 1 IN 1 DAY

REACTIONS (15)
  - ELECTROCARDIOGRAM QT PROLONGED [None]
  - MYOCARDIAL ISCHAEMIA [None]
  - BACTERIAL TEST POSITIVE [None]
  - LEFT VENTRICULAR DYSFUNCTION [None]
  - BLOOD PRESSURE DECREASED [None]
  - GOUT [None]
  - URINARY TRACT INFECTION [None]
  - FEBRILE NEUTROPENIA [None]
  - ACUTE MYOCARDIAL INFARCTION [None]
  - PROCTALGIA [None]
  - ENTEROCOCCUS TEST POSITIVE [None]
  - RECTAL FISSURE [None]
  - VENTRICULAR EXTRASYSTOLES [None]
  - DIASTOLIC DYSFUNCTION [None]
  - FUNGAL TEST POSITIVE [None]
